FAERS Safety Report 7796924 (Version 4)
Quarter: 2013Q3

REPORT INFORMATION
  Report Type: Spontaneous
  Country: BE (occurrence: None)
  Receive Date: 20110112
  Receipt Date: 20130708
  Transmission Date: 20140515
  Serious: Yes (Hospitalization, Other)
  Sender: FDA-Public Use
  Company Number: BE-021107

PATIENT
  Age: 73 Year
  Sex: Female

DRUGS (14)
  1. CHLORAMBUCIL [Suspect]
     Indication: CHRONIC LYMPHOCYTIC LEUKAEMIA
     Dosage: ON DAYS 1 AND 15 (40 MG)
     Dates: start: 20100706, end: 20100831
  2. ELTHYRONE  (LEVOTHYROXIN ESODIUM) [Concomitant]
  3. DOMPERIDONE [Concomitant]
  4. AMLOR (AMLODIPINE) [Concomitant]
  5. LYSOMUCIL ACETYLCYSTEINE [Concomitant]
  6. D-CURE (COLECALCIFEROL) [Concomitant]
  7. AVELOX (MOXIFLOXACIN) [Concomitant]
  8. STAPHYCID (FLUCLOXACILLIN) [Concomitant]
  9. ACICLOVIR [Concomitant]
  10. XYZAL [Concomitant]
  11. EPOETIN ALFA [Concomitant]
  12. ISOBETADINE (POVIDONE-IODINE) [Concomitant]
  13. PENSTAPHO (OXACILLIN) [Concomitant]
  14. CLEXANE  (ENOXAPARIN) [Concomitant]

REACTIONS (9)
  - Blister [None]
  - Phlebitis [None]
  - Flank pain [None]
  - Rib fracture [None]
  - Rash [None]
  - Cellulitis [None]
  - Cerebral haemorrhage [None]
  - Pyrexia [None]
  - Rash [None]
